FAERS Safety Report 4923745-3 (Version None)
Quarter: 2006Q1

REPORT INFORMATION
  Report Type: 
  Country: None (occurrence: None)
  Receive Date: 20060227
  Receipt Date: 20051205
  Transmission Date: 20060701
  Serious: Yes (Death)
  Sender: FDA-Public Use
  Company Number: US-MERCK-0512USA00700

PATIENT
  Age: 49 Year
  Sex: Male

DRUGS (1)
  1. VIOXX [Suspect]
     Route: 048

REACTIONS (5)
  - ARTERIOSCLEROSIS [None]
  - CARDIOMEGALY [None]
  - EMPHYSEMA [None]
  - INTESTINAL INFARCTION [None]
  - OBESITY [None]
